FAERS Safety Report 13205207 (Version 1)
Quarter: 2017Q1

REPORT INFORMATION
  Report Type: Spontaneous
  Country: None (occurrence: US)
  Receive Date: 20170209
  Receipt Date: 20170209
  Transmission Date: 20170428
  Serious: No
  Sender: FDA-Public Use
  Company Number: US-MEDAC PHARMA, INC.-1062931

PATIENT
  Age: 49 Year
  Sex: Male
  Weight: 106.82 kg

DRUGS (5)
  1. RASUVO [Suspect]
     Active Substance: METHOTREXATE SODIUM
     Indication: NEUROSARCOIDOSIS
     Dates: start: 2016
  2. DIFLUCAN [Concomitant]
     Active Substance: FLUCONAZOLE
  3. HUMIRA [Concomitant]
     Active Substance: ADALIMUMAB
  4. CLONAZEPAM. [Concomitant]
     Active Substance: CLONAZEPAM
  5. LYRICA [Concomitant]
     Active Substance: PREGABALIN

REACTIONS (5)
  - Accidental exposure to product [Recovered/Resolved]
  - Exposure via skin contact [Recovered/Resolved]
  - Injection site haemorrhage [Recovered/Resolved]
  - Device issue [Recovered/Resolved]
  - Product use issue [None]

NARRATIVE: CASE EVENT DATE: 20170109
